FAERS Safety Report 7526323-5 (Version None)
Quarter: 2011Q2

REPORT INFORMATION
  Report Type: 
  Country: None (occurrence: None)
  Receive Date: 20110603
  Receipt Date: 20110603
  Transmission Date: 20111010
  Serious: Yes (Other)
  Sender: FDA-Public Use
  Company Number: None

PATIENT
  Age: 41 Year
  Sex: Female
  Weight: 68.0396 kg

DRUGS (2)
  1. DIFLUCAN [Suspect]
     Indication: PROPHYLAXIS
     Dosage: 1 1 PO 1 TAB
     Route: 048
     Dates: start: 20110531
  2. DIFLUCAN [Suspect]
     Indication: FUNGAL INFECTION
     Dosage: 1 1 PO 1 TAB
     Route: 048
     Dates: start: 20110531

REACTIONS (19)
  - URTICARIA [None]
  - MUSCLE TIGHTNESS [None]
  - ARTERIAL DISORDER [None]
  - DYSPHONIA [None]
  - CHEST DISCOMFORT [None]
  - HYPERSENSITIVITY [None]
  - PALPITATIONS [None]
  - FATIGUE [None]
  - ORAL PAIN [None]
  - OROPHARYNGEAL PAIN [None]
  - INSOMNIA [None]
  - DIZZINESS [None]
  - FEELING OF BODY TEMPERATURE CHANGE [None]
  - ERYTHEMA [None]
  - OEDEMA PERIPHERAL [None]
  - PAIN IN EXTREMITY [None]
  - COUGH [None]
  - STOMATITIS [None]
  - SNEEZING [None]
